FAERS Safety Report 19636548 (Version 1)
Quarter: 2021Q3

REPORT INFORMATION
  Report Type: Report from Study
  Country: HK (occurrence: HK)
  Receive Date: 20210730
  Receipt Date: 20210730
  Transmission Date: 20211014
  Serious: Yes (Other)
  Sender: FDA-Public Use
  Company Number: HK-SUN PHARMACEUTICAL INDUSTRIES LTD-2021R1-306109

PATIENT
  Age: 30 Year
  Sex: Female

DRUGS (7)
  1. BISACODYL. [Suspect]
     Active Substance: BISACODYL
     Indication: WEIGHT DECREASED
     Dosage: UNK
     Route: 065
  2. EMODIN [Concomitant]
     Active Substance: EMODIN
     Indication: WEIGHT DECREASED
     Dosage: UNK
     Route: 065
  3. FUROSEMIDE. [Suspect]
     Active Substance: FUROSEMIDE
     Indication: WEIGHT DECREASED
     Dosage: UNK
     Route: 065
  4. HYDROCHLOROTHIAZIDE. [Suspect]
     Active Substance: HYDROCHLOROTHIAZIDE
     Indication: WEIGHT DECREASED
     Dosage: UNK
     Route: 065
  5. THYROXINE [Suspect]
     Active Substance: LEVOTHYROXINE
     Indication: WEIGHT DECREASED
     Dosage: UNK
     Route: 065
  6. ALOE?EMODIN [Concomitant]
     Active Substance: ALOE EMODIN
     Indication: WEIGHT DECREASED
     Dosage: UNK
     Route: 065
  7. RHEIN [Concomitant]
     Active Substance: RHEIN
     Indication: WEIGHT DECREASED
     Dosage: UNK
     Route: 065

REACTIONS (3)
  - Hypokalaemia [Unknown]
  - Blood thyroid stimulating hormone decreased [Unknown]
  - Ventricular fibrillation [Unknown]
